FAERS Safety Report 7641526-7 (Version None)
Quarter: 2011Q3

REPORT INFORMATION
  Report Type: 
  Country: None (occurrence: None)
  Receive Date: 20110722
  Receipt Date: 20110708
  Transmission Date: 20111222
  Serious: Yes (Hospitalization)
  Sender: FDA-Public Use
  Company Number: 975474

PATIENT
  Age: 62 Year
  Sex: Male
  Weight: 72.5 kg

DRUGS (9)
  1. FLUOROURACIL [Suspect]
     Indication: COLORECTAL CANCER METASTATIC
     Dosage: INTRAVNEOUS (NOT OTHERWISE SPECIFIED)
     Route: 042
     Dates: start: 20110426, end: 20110428
  2. (MIXTARD /00806401/) [Concomitant]
  3. (EYE DROPS) [Concomitant]
  4. (FERROUS SULPHATE /00023503/) [Concomitant]
  5. SIMVASTATIN [Concomitant]
  6. LANSOPRAZOLE [Concomitant]
  7. (LISINOPRIL0 [Concomitant]
  8. IRINOTECAN HCL [Suspect]
     Indication: COLORECTAL CANCER METASTATIC
     Dosage: 330 MG MILLIGRAM(S), INTRAVNEOUS (NOT OTHERWISE SPECIFIED)
     Route: 042
     Dates: start: 20110426, end: 20110426
  9. HUMALOG [Concomitant]

REACTIONS (1)
  - URINARY RETENTION [None]
